FAERS Safety Report 6391816-3 (Version None)
Quarter: 2009Q4

REPORT INFORMATION
  Report Type: 
  Country: None (occurrence: None)
  Receive Date: 20091007
  Receipt Date: 20090928
  Transmission Date: 20100525
  Serious: Yes (Other)
  Sender: FDA-Public Use
  Company Number: US-BAYER-200928468NA

PATIENT
  Age: 34 Year
  Sex: Female
  Weight: 86 kg

DRUGS (2)
  1. MIRENA [Suspect]
     Indication: CONTRACEPTION
     Dosage: CONTINUOUS
     Route: 015
     Dates: start: 20040501, end: 20090727
  2. NEXIUM [Concomitant]

REACTIONS (5)
  - DEPRESSION [None]
  - DEVICE BREAKAGE [None]
  - HYPERHIDROSIS [None]
  - PROCEDURAL PAIN [None]
  - UTERINE RUPTURE [None]
